FAERS Safety Report 4803427-9 (Version None)
Quarter: 2005Q4

REPORT INFORMATION
  Report Type: 
  Country: None (occurrence: None)
  Receive Date: 20051014
  Receipt Date: 20051003
  Transmission Date: 20060501
  Serious: Yes (Hospitalization, Other)
  Sender: FDA-Public Use
  Company Number: FRWYE025804OCT05

PATIENT
  Age: 61 Year
  Sex: Female

DRUGS (13)
  1. EFFEXOR XR [Suspect]
     Indication: BIPOLAR I DISORDER
     Dosage: SEE IMAGE
     Route: 048
     Dates: start: 20050609, end: 20050708
  2. EFFEXOR XR [Suspect]
     Indication: BIPOLAR I DISORDER
     Dosage: SEE IMAGE
     Route: 048
     Dates: start: 20050709
  3. VALPROATE SODIUM [Suspect]
     Dosage: 37.5 MG DAILY, ORAL
     Route: 048
     Dates: end: 20050709
  4. AMITRIPTYLINE HCL [Suspect]
     Indication: BIPOLAR I DISORDER
     Dosage: DAILY DOSE, ORAL
     Route: 048
     Dates: end: 20050709
  5. LEVOTHYROX (LEVBOTHYROXINE SODIUM) [Suspect]
     Indication: HYPOTHYROIDISM
     Dosage: SEE IMAGE
     Route: 048
     Dates: start: 20050321, end: 20050706
  6. LEVOTHYROX (LEVBOTHYROXINE SODIUM) [Suspect]
     Indication: HYPOTHYROIDISM
     Dosage: SEE IMAGE
     Route: 048
     Dates: start: 20050716
  7. OXAZEPAM [Suspect]
     Indication: ANXIETY
     Dosage: 50 MG 1X PER 1 DAY, ORAL
     Route: 048
     Dates: end: 20050709
  8. TERCIAN (CYAMEMAZINE,) [Suspect]
     Indication: ANXIETY
     Dosage: 15 MG 1X PER 1 DAY, ORAL
     Route: 048
     Dates: start: 20050608, end: 20050709
  9. TAMOXIGEN (TAMOXIFEN) [Concomitant]
  10. PIRACETAM (PIRACETAM) [Concomitant]
  11. LOSARTAN POTASSIUM [Concomitant]
  12. VALPROMIDE (VALPROMIDE) [Concomitant]
  13. ZOLPIDEM TARTRATE [Concomitant]

REACTIONS (3)
  - BLOOD THYROID STIMULATING HORMONE DECREASED [None]
  - CONVULSION [None]
  - HYPERTHYROIDISM [None]
